FAERS Safety Report 11789978 (Version 1)
Quarter: 2015Q4

REPORT INFORMATION
  Report Type: Spontaneous
  Country: US (occurrence: None)
  Receive Date: 20151130
  Receipt Date: 20151130
  Transmission Date: 20160305
  Serious: Yes (Hospitalization)
  Sender: FDA-Public Use
  Company Number: None

PATIENT
  Age: 47 Year
  Sex: Male
  Weight: 159.67 kg

DRUGS (2)
  1. PIPERACILLIN AND TAZOBACTAM [Suspect]
     Active Substance: PIPERACILLIN SODIUM\TAZOBACTAM SODIUM
     Indication: OSTEOMYELITIS
     Route: 042
     Dates: start: 20150401, end: 20150407
  2. VANCOMYCIN [Concomitant]
     Active Substance: VANCOMYCIN

REACTIONS (8)
  - Stevens-Johnson syndrome [None]
  - Conjunctivitis [None]
  - Rash maculo-papular [None]
  - Pyrexia [None]
  - Oedema peripheral [None]
  - Blister [None]
  - Candida infection [None]
  - Oropharyngeal pain [None]

NARRATIVE: CASE EVENT DATE: 20150407
